FAERS Safety Report 24655590 (Version 5)
Quarter: 2025Q3

REPORT INFORMATION
  Report Type: Spontaneous
  Country: CA (occurrence: CA)
  Receive Date: 20241123
  Receipt Date: 20250823
  Transmission Date: 20251021
  Serious: Yes (Hospitalization)
  Sender: CELLTRION
  Company Number: CA-PFIZER INC-202400302715

PATIENT

DRUGS (24)
  1. INFLECTRA [Suspect]
     Active Substance: INFLIXIMAB-DYYB
     Indication: Sarcoidosis
     Dates: start: 20240822
  2. INFLECTRA [Suspect]
     Active Substance: INFLIXIMAB-DYYB
     Dates: start: 20241018
  3. INFLECTRA [Suspect]
     Active Substance: INFLIXIMAB-DYYB
     Dates: start: 20241114
  4. INFLECTRA [Suspect]
     Active Substance: INFLIXIMAB-DYYB
     Dates: start: 20250403
  5. INFLECTRA [Suspect]
     Active Substance: INFLIXIMAB-DYYB
     Dates: start: 20250501
  6. INFLECTRA [Suspect]
     Active Substance: INFLIXIMAB-DYYB
     Dates: start: 20250501
  7. INFLECTRA [Suspect]
     Active Substance: INFLIXIMAB-DYYB
     Dates: start: 20250616
  8. INFLECTRA [Suspect]
     Active Substance: INFLIXIMAB-DYYB
     Dates: start: 20250714
  9. ALENDRONATE [Concomitant]
     Active Substance: ALENDRONATE SODIUM
  10. BACLOFEN [Concomitant]
     Active Substance: BACLOFEN
  11. CALCIUM [Concomitant]
     Active Substance: CALCIUM
  12. FOLIC ACID [Concomitant]
     Active Substance: FOLIC ACID
  13. ESCITALOPRAM [Concomitant]
     Active Substance: ESCITALOPRAM OXALATE
  14. HYDROXYMETHYL CELLULOSE [Concomitant]
     Active Substance: HYDROXYMETHYL CELLULOSE
  15. LEVOTHYROXINE [Concomitant]
     Active Substance: LEVOTHYROXINE
  16. METAMUCIL [Concomitant]
     Active Substance: PLANTAGO SEED
  17. FISH OIL [Concomitant]
     Active Substance: FISH OIL
  18. PREDNISONE [Concomitant]
     Active Substance: PREDNISONE
  19. RABEPRAZOLE [Concomitant]
     Active Substance: RABEPRAZOLE
  20. SEPTRA [Concomitant]
     Active Substance: SULFAMETHOXAZOLE\TRIMETHOPRIM
  21. VALACYCLOVIR [Concomitant]
     Active Substance: VALACYCLOVIR HYDROCHLORIDE
  22. VITAMIN B12 [Concomitant]
     Active Substance: CYANOCOBALAMIN
  23. CHOLECALCIFEROL [Concomitant]
     Active Substance: CHOLECALCIFEROL
  24. HADLIMA [ADALIMUMAB BWWD] [Concomitant]
     Indication: Sarcoidosis

REACTIONS (3)
  - Shoulder arthroplasty [Recovering/Resolving]
  - Condition aggravated [Not Recovered/Not Resolved]
  - Incorrect dose administered [Unknown]

NARRATIVE: CASE EVENT DATE: 20241104
